FAERS Safety Report 7259947-3 (Version None)
Quarter: 2011Q1

REPORT INFORMATION
  Report Type: 
  Country: None (occurrence: None)
  Receive Date: 20110130
  Receipt Date: 20101018
  Transmission Date: 20110831
  Serious: No
  Sender: FDA-Public Use
  Company Number: US-ABBOTT-10P-163-0679046-00

PATIENT
  Sex: Female

DRUGS (5)
  1. COSOPT [Concomitant]
     Indication: PRODUCT USED FOR UNKNOWN INDICATION
     Dosage: 1 DROP AM AND 1 DROP PM FOR LEFT EYE
  2. HUMIRA [Suspect]
     Indication: PSORIASIS
     Dosage: INITIAL DOSE; THEN 40MG EVERY OTHER WEEK
     Dates: start: 20101015
  3. METOPROLOL [Concomitant]
     Indication: BLOOD PRESSURE
     Dosage: DAILY
  4. ALPHAGAN [Concomitant]
     Indication: PRODUCT USED FOR UNKNOWN INDICATION
     Dosage: EYE ONE DROP IN AM AND PM LEFT EYE DAILY
  5. TRAVATAN Z [Concomitant]
     Indication: GLAUCOMA
     Dosage: ONCE DAILY TO BOTH EYE

REACTIONS (1)
  - INJECTION SITE PRURITUS [None]
